FAERS Safety Report 11363013 (Version 1)
Quarter: 2015Q3

REPORT INFORMATION
  Report Type: Spontaneous
  Country: DK (occurrence: None)
  Receive Date: 20150807
  Receipt Date: 20150807
  Transmission Date: 20151125
  Serious: Yes (Life-Threatening, Other)
  Sender: FDA-Public Use
  Company Number: CO-ZF-DK-2015-010

PATIENT
  Age: 76 Year
  Sex: Female

DRUGS (7)
  1. HYDROXYZINE HYDROCHLORIDE. [Concomitant]
     Active Substance: HYDROXYZINE HYDROCHLORIDE
  2. TIOTROPIUM BROMIDE [Concomitant]
     Active Substance: TIOTROPIUM BROMIDE
  3. ZINACEF [Suspect]
     Active Substance: CEFUROXIME SODIUM
     Indication: BETA HAEMOLYTIC STREPTOCOCCAL INFECTION
     Route: 042
     Dates: start: 20150713, end: 20150713
  4. ACITRETIN. [Concomitant]
     Active Substance: ACITRETIN
  5. FLUTICASONE PROPIONATE, SALMETEROL XINAFOATE [Concomitant]
  6. SOLIFENACIN SUCCINATE. [Concomitant]
     Active Substance: SOLIFENACIN SUCCINATE
  7. PREDNISOLONE. [Concomitant]
     Active Substance: PREDNISOLONE

REACTIONS (4)
  - Cardiac arrest [None]
  - Malaise [None]
  - Pulseless electrical activity [None]
  - Anaphylactic reaction [None]

NARRATIVE: CASE EVENT DATE: 20150713
